FAERS Safety Report 6828764-8 (Version None)
Quarter: 2010Q3

REPORT INFORMATION
  Report Type: 
  Country: None (occurrence: None)
  Receive Date: 20100709
  Receipt Date: 20070219
  Transmission Date: 20110219
  Serious: No
  Sender: FDA-Public Use
  Company Number: US-PFIZER INC-2007014565

PATIENT
  Sex: Female
  Weight: 81.65 kg

DRUGS (18)
  1. CHANTIX [Suspect]
     Indication: SMOKING CESSATION THERAPY
     Dates: start: 20070207, end: 20070217
  2. ALLEGRA D 24 HOUR [Concomitant]
  3. TRIMETHOPRIM [Concomitant]
     Indication: BLADDER DISORDER
  4. PREVACID [Concomitant]
  5. SARAFEM [Concomitant]
  6. XANAX [Concomitant]
  7. CRESTOR [Concomitant]
  8. NEURONTIN [Concomitant]
  9. PLAVIX [Concomitant]
  10. ZANTAC [Concomitant]
  11. PREMARIN [Concomitant]
  12. VICODIN ES [Concomitant]
  13. ALL OTHER THERAPEUTIC PRODUCTS [Concomitant]
     Indication: ROTATOR CUFF SYNDROME
     Dates: start: 20070205
  14. TESSALON [Concomitant]
  15. COMBIVENT [Concomitant]
     Indication: ASTHMA
     Route: 055
  16. BROMIDES [Concomitant]
     Indication: ASTHMA
     Route: 055
  17. ADVAIR DISKUS 100/50 [Concomitant]
     Indication: ASTHMA
     Route: 055
  18. ALBUTEROL SULFATE [Concomitant]
     Indication: ASTHMA
     Route: 055

REACTIONS (8)
  - DEPRESSION [None]
  - DYSGEUSIA [None]
  - HEADACHE [None]
  - INFLUENZA LIKE ILLNESS [None]
  - MALAISE [None]
  - MUSCLE SPASMS [None]
  - NAUSEA [None]
  - THINKING ABNORMAL [None]
